FAERS Safety Report 7458245-2 (Version None)
Quarter: 2011Q2

REPORT INFORMATION
  Report Type: 
  Country: None (occurrence: None)
  Receive Date: 20110504
  Receipt Date: 20110425
  Transmission Date: 20111010
  Serious: Yes (Life-Threatening, Hospitalization, Disabling)
  Sender: FDA-Public Use
  Company Number: JP-MERCK-1104USA03289

PATIENT
  Age: 79 Year
  Sex: Male
  Weight: 42 kg

DRUGS (11)
  1. FERROUS CITRATE [Concomitant]
     Indication: ANAEMIA
     Route: 048
     Dates: start: 20090304, end: 20110418
  2. DEPAS [Concomitant]
     Indication: INSOMNIA
     Route: 048
     Dates: start: 19990507, end: 20110418
  3. WARFARIN POTASSIUM [Concomitant]
     Route: 065
     Dates: start: 20010117, end: 20110418
  4. LASIX [Concomitant]
     Indication: OEDEMA
     Route: 048
     Dates: start: 20050427, end: 20110418
  5. WARFARIN POTASSIUM [Concomitant]
     Indication: ATRIAL FIBRILLATION
     Route: 048
     Dates: start: 20010117, end: 20110418
  6. JANUVIA [Suspect]
     Indication: PANCREATOGENOUS DIABETES
     Route: 048
     Dates: start: 20110202, end: 20110418
  7. OLMETEC [Concomitant]
     Indication: HYPERTENSION
     Route: 048
     Dates: start: 20070829, end: 20110418
  8. ALLOPURINOL [Concomitant]
     Indication: HYPERURICAEMIA
     Route: 048
     Dates: start: 20090617, end: 20110418
  9. DIGOXIN [Suspect]
     Indication: ATRIAL FIBRILLATION
     Route: 048
     Dates: start: 20040414, end: 20110418
  10. ARTIST [Concomitant]
     Indication: ARRHYTHMIA
     Route: 048
     Dates: start: 20030108, end: 20110418
  11. METHYCOBAL [Concomitant]
     Indication: HYPOVITAMINOSIS
     Route: 048
     Dates: start: 20041212, end: 20110418

REACTIONS (1)
  - RENAL FAILURE ACUTE [None]
